FAERS Safety Report 4318490-1 (Version None)
Quarter: 2004Q1

REPORT INFORMATION
  Report Type: 
  Country: None (occurrence: None)
  Receive Date: 20040316
  Receipt Date: 20040316
  Transmission Date: 20041129
  Serious: Yes (Other)
  Sender: FDA-Public Use
  Company Number: None

PATIENT
  Age: 57 Year
  Sex: Male

DRUGS (5)
  1. SOTALOL HCL [Suspect]
     Indication: VENTRICULAR FIBRILLATION
     Dosage: 160 MG BID PO
     Route: 048
     Dates: start: 20030801, end: 20031119
  2. SIMVASTATIN [Concomitant]
  3. LISINOPRIL [Concomitant]
  4. SERTRALINE HCL [Concomitant]
  5. ASPIRIN [Concomitant]

REACTIONS (2)
  - PHARMACEUTICAL PRODUCT COMPLAINT [None]
  - VENTRICULAR FIBRILLATION [None]
